FAERS Safety Report 8460010-4 (Version None)
Quarter: 2012Q2

REPORT INFORMATION
  Report Type: 
  Country: None (occurrence: None)
  Receive Date: 20120622
  Receipt Date: 20120621
  Transmission Date: 20120825
  Serious: Yes (Death, Other)
  Sender: FDA-Public Use
  Company Number: PHHY2012IT053187

PATIENT
  Sex: Female

DRUGS (5)
  1. ZOFRAN [Concomitant]
     Indication: ANTIEMETIC SUPPORTIVE CARE
     Dates: start: 20120619
  2. PACLITAXEL [Suspect]
     Indication: OVARIAN CANCER
     Dosage: 135 MG/M2 CYCLIC DOSAGE
     Route: 042
     Dates: start: 20120619
  3. DEXAMETHASONE SODIUM PHOSPHATE [Concomitant]
     Indication: ANTIEMETIC SUPPORTIVE CARE
     Dates: start: 20120619
  4. ZANTAC [Concomitant]
     Indication: ANTIEMETIC SUPPORTIVE CARE
     Dates: start: 20120619
  5. TRIMETON [Concomitant]
     Indication: ANTIEMETIC SUPPORTIVE CARE
     Dates: start: 20120619

REACTIONS (5)
  - DEATH [None]
  - CARDIOGENIC SHOCK [None]
  - ABDOMINAL PAIN [None]
  - TACHYCARDIA [None]
  - DYSPNOEA [None]
